FAERS Safety Report 6748280-1 (Version None)
Quarter: 2010Q2

REPORT INFORMATION
  Report Type: 
  Country: None (occurrence: None)
  Receive Date: 20100601
  Receipt Date: 20100521
  Transmission Date: 20101027
  Serious: No
  Sender: FDA-Public Use
  Company Number: US-BIOGENIDEC-2010BI017259

PATIENT
  Age: 33 Year
  Sex: Female

DRUGS (2)
  1. TYSABRI [Suspect]
     Indication: MULTIPLE SCLEROSIS
     Route: 042
     Dates: start: 20080104, end: 20090901
  2. TYSABRI [Suspect]
     Route: 042
     Dates: start: 20100518

REACTIONS (4)
  - HEADACHE [None]
  - MOOD ALTERED [None]
  - NAUSEA [None]
  - NECK PAIN [None]
